FAERS Safety Report 6548133-8 (Version None)
Quarter: 2010Q1

REPORT INFORMATION
  Report Type: 
  Country: None (occurrence: None)
  Receive Date: 20100124
  Receipt Date: 20090108
  Transmission Date: 20100710
  Serious: No
  Sender: FDA-Public Use
  Company Number: US-ALLERGAN-0900212US

PATIENT
  Sex: Female

DRUGS (4)
  1. RESTASIS [Suspect]
     Indication: POSTOPERATIVE CARE
     Dosage: UNK, UNKNOWN
     Route: 047
  2. RESTASIS [Suspect]
     Indication: LACRIMAL DISORDER
  3. LOTEMAX [Suspect]
     Indication: POSTOPERATIVE CARE
     Dosage: UNK, UNKNOWN
     Route: 047
  4. LOTEMAX [Suspect]
     Indication: LACRIMATION DECREASED

REACTIONS (1)
  - DRUG INEFFECTIVE [None]
